FAERS Safety Report 9058354 (Version 2)
Quarter: 2013Q2

REPORT INFORMATION
  Report Type: Spontaneous
  Country: US (occurrence: None)
  Receive Date: 20130118
  Receipt Date: 20130425
  Transmission Date: 20140414
  Serious: Yes (Other)
  Sender: FDA-Public Use
  Company Number: CIO13000475

PATIENT
  Age: 51 Year
  Sex: Female

DRUGS (2)
  1. PRO-HEALTH CLINICAL ORAL RINSE [Suspect]
     Dosage: 1 APPLIC, 1 /DAY, 2-3 TIMES A WEEK, INTRAORAL
     Dates: start: 20120801, end: 20121121
  2. CETIRIZINE (CETIRIZINE) [Concomitant]

REACTIONS (9)
  - Dysphagia [None]
  - Dry mouth [None]
  - Dry throat [None]
  - Lip dry [None]
  - Dysphonia [None]
  - Gastrooesophageal reflux disease [None]
  - Hypersensitivity [None]
  - Glossitis [None]
  - Condition aggravated [None]
